FAERS Safety Report 17205139 (Version 1)
Quarter: 2020Q1

REPORT INFORMATION
  Report Type: Spontaneous
  Country: US (occurrence: US)
  Receive Date: 20191226
  Receipt Date: 20191226
  Transmission Date: 20200409
  Serious: Yes (Other)
  Sender: FDA-Public Use
  Company Number: None

PATIENT
  Age: 48 Year
  Sex: Male
  Weight: 113.85 kg

DRUGS (11)
  1. METOPROLOL XL 100MG [Concomitant]
     Active Substance: METOPROLOL
  2. OTEZLA [Suspect]
     Active Substance: APREMILAST
     Indication: PSORIASIS
     Dosage: ?          QUANTITY:1 TABLET(S);?
     Route: 048
     Dates: start: 20191216, end: 20191224
  3. LIPITOR 80MG [Concomitant]
  4. ADDERALL XR [Concomitant]
     Active Substance: AMPHETAMINE ASPARTATE\AMPHETAMINE SULFATE\DEXTROAMPHETAMINE SACCHARATE\DEXTROAMPHETAMINE SULFATE
  5. METFORMINSR 1000 MG [Concomitant]
  6. JULUCA [Concomitant]
     Active Substance: DOLUTEGRAVIR SODIUM\RILPIVIRINE HYDROCHLORIDE
  7. GABAPENTIN 1200 MG [Concomitant]
  8. LISINOPRIL. [Concomitant]
     Active Substance: LISINOPRIL
  9. INVOKANA [Concomitant]
     Active Substance: CANAGLIFLOZIN
  10. TRICOR [Concomitant]
     Active Substance: FENOFIBRATE
  11. LANTUS 40 UNITS [Concomitant]

REACTIONS (2)
  - Diarrhoea [None]
  - Pancreatitis [None]

NARRATIVE: CASE EVENT DATE: 20191225
